FAERS Safety Report 7793722-6 (Version None)
Quarter: 2011Q4

REPORT INFORMATION
  Report Type: 
  Country: None (occurrence: None)
  Receive Date: 20111003
  Receipt Date: 20110921
  Transmission Date: 20120403
  Serious: Yes (Other)
  Sender: FDA-Public Use
  Company Number: US-SANOFI-AVENTIS-2011SA052266

PATIENT
  Sex: Female

DRUGS (3)
  1. LANTUS [Suspect]
     Indication: TYPE 2 DIABETES MELLITUS
     Dosage: DOSE:25 UNIT(S)
     Route: 058
     Dates: start: 20110601
  2. SOLOSTAR [Suspect]
     Indication: TYPE 2 DIABETES MELLITUS
     Dates: start: 20110101, end: 20110101
  3. INSULIN DETEMIR [Suspect]
     Route: 065

REACTIONS (4)
  - WRONG DRUG ADMINISTERED [None]
  - FEELING ABNORMAL [None]
  - BLOOD GLUCOSE INCREASED [None]
  - WEIGHT DECREASED [None]
